FAERS Safety Report 24741286 (Version 2)
Quarter: 2025Q1

REPORT INFORMATION
  Report Type: Spontaneous
  Country: CA (occurrence: CA)
  Receive Date: 20241217
  Receipt Date: 20250327
  Transmission Date: 20250409
  Serious: Yes (Other)
  Sender: CSL BEHRING
  Company Number: CA-BEH-2024187269

PATIENT
  Age: 69 Year
  Sex: Female

DRUGS (2)
  1. HUMAN C1-ESTERASE INHIBITOR [Suspect]
     Active Substance: HUMAN C1-ESTERASE INHIBITOR
     Indication: Prophylaxis
     Dosage: 3000 IU, BIW, 2 EVERY 1 WEEKS
     Route: 058
  2. HUMAN C1-ESTERASE INHIBITOR [Suspect]
     Active Substance: HUMAN C1-ESTERASE INHIBITOR
     Indication: Hereditary angioedema
     Route: 065

REACTIONS (12)
  - Hereditary angioedema [Not Recovered/Not Resolved]
  - Fatigue [Not Recovered/Not Resolved]
  - Malaise [Not Recovered/Not Resolved]
  - Pyrexia [Not Recovered/Not Resolved]
  - Recurrent cancer [Not Recovered/Not Resolved]
  - Liquid product physical issue [Not Recovered/Not Resolved]
  - Drug ineffective for unapproved indication [Not Recovered/Not Resolved]
  - Intentional product use issue [Not Recovered/Not Resolved]
  - Poor quality product administered [Not Recovered/Not Resolved]
  - Product use in unapproved indication [Not Recovered/Not Resolved]
  - Treatment noncompliance [Not Recovered/Not Resolved]
  - Off label use [Unknown]
